FAERS Safety Report 12450387 (Version 1)
Quarter: 2016Q2

REPORT INFORMATION
  Report Type: Spontaneous
  Country: JP (occurrence: JP)
  Receive Date: 20160609
  Receipt Date: 20160609
  Transmission Date: 20160815
  Serious: Yes (Other)
  Sender: FDA-Public Use
  Company Number: JP-JNJFOC-20160603717

PATIENT
  Sex: Male

DRUGS (1)
  1. ZYTIGA [Suspect]
     Active Substance: ABIRATERONE ACETATE
     Indication: HORMONE-REFRACTORY PROSTATE CANCER
     Route: 048

REACTIONS (8)
  - Liver disorder [Unknown]
  - Hypertension [Unknown]
  - Musculoskeletal disorder [Unknown]
  - Blood potassium decreased [Unknown]
  - Malaise [Unknown]
  - Anaemia [Unknown]
  - Cardiovascular disorder [Unknown]
  - Blood potassium increased [Unknown]
